FAERS Safety Report 13033627 (Version 2)
Quarter: 2017Q3

REPORT INFORMATION
  Report Type: Report from Study
  Country: US (occurrence: US)
  Receive Date: 20161216
  Receipt Date: 20170712
  Transmission Date: 20171127
  Serious: No
  Sender: FDA-Public Use
  Company Number: PHEH2016US032507

PATIENT
  Age: 28 Year
  Sex: Female

DRUGS (4)
  1. SUNSCREEN [Suspect]
     Active Substance: HOMOSALATE\OCTINOXATE\OCTISALATE\OXYBENZONE\TITANIUM DIOXIDE
     Indication: PRODUCT USED FOR UNKNOWN INDICATION
     Route: 065
  2. RITALIN [Concomitant]
     Active Substance: METHYLPHENIDATE HYDROCHLORIDE
     Indication: PRODUCT USED FOR UNKNOWN INDICATION
     Route: 065
  3. GILENYA [Suspect]
     Active Substance: FINGOLIMOD HYDROCHLORIDE
     Indication: MULTIPLE SCLEROSIS
     Dosage: 0.5 MG, QD
     Route: 048
     Dates: start: 20161212
  4. MIRENA [Concomitant]
     Active Substance: LEVONORGESTREL
     Indication: CONTRACEPTION
     Route: 065

REACTIONS (3)
  - Fatigue [Recovered/Resolved]
  - Asthenia [Recovered/Resolved]
  - Sunburn [Unknown]

NARRATIVE: CASE EVENT DATE: 20161212
